FAERS Safety Report 23693525 (Version 1)
Quarter: 2024Q2

REPORT INFORMATION
  Report Type: Spontaneous
  Country: CN (occurrence: None)
  Receive Date: 20240401
  Receipt Date: 20240401
  Transmission Date: 20240716
  Serious: Yes (Death)
  Sender: FDA-Public Use
  Company Number: CN-ROCHE-3533165

PATIENT
  Age: 44 Year
  Sex: Male

DRUGS (1)
  1. ACTEMRA [Suspect]
     Active Substance: TOCILIZUMAB
     Indication: Endocrine ophthalmopathy
     Dosage: INJECTION (DETAILS UNKNOWN)
     Route: 065
     Dates: start: 20240323

REACTIONS (1)
  - Death [Fatal]

NARRATIVE: CASE EVENT DATE: 20240324
